FAERS Safety Report 10580576 (Version 4)
Quarter: 2015Q1

REPORT INFORMATION
  Report Type: Spontaneous
  Country: GB (occurrence: GB)
  Receive Date: 20141113
  Receipt Date: 20150313
  Transmission Date: 20150720
  Serious: Yes (Hospitalization)
  Sender: FDA-Public Use
  Company Number: GB-TAKEDA-2014TJP015573

PATIENT
  Age: 61 Year
  Sex: Female

DRUGS (1)
  1. ZOTON FASTAB [Suspect]
     Active Substance: LANSOPRAZOLE
     Indication: GASTROINTESTINAL DISORDER
     Dosage: 30 MG, BID
     Route: 048
     Dates: start: 201205

REACTIONS (7)
  - Muscular weakness [Not Recovered/Not Resolved]
  - Asthenia [Not Recovered/Not Resolved]
  - Bone pain [Recovering/Resolving]
  - Vitamin B12 decreased [Recovered/Resolved]
  - Fatigue [Not Recovered/Not Resolved]
  - Upper limb fracture [Not Recovered/Not Resolved]
  - Muscle twitching [Not Recovered/Not Resolved]

NARRATIVE: CASE EVENT DATE: 201208
